FAERS Safety Report 4862655-7 (Version None)
Quarter: 2005Q4

REPORT INFORMATION
  Report Type: 
  Country: None (occurrence: None)
  Receive Date: 20051219
  Receipt Date: 20051207
  Transmission Date: 20060501
  Serious: Yes (Death)
  Sender: FDA-Public Use
  Company Number: 2005166615

PATIENT
  Sex: 0

DRUGS (1)
  1. PSEUDOEPHEDRINE HCL [Suspect]

REACTIONS (1)
  - DEATH NEONATAL [None]
